FAERS Safety Report 6653522-7 (Version None)
Quarter: 2010Q1

REPORT INFORMATION
  Report Type: 
  Country: None (occurrence: None)
  Receive Date: 20100326
  Receipt Date: 20100316
  Transmission Date: 20100710
  Serious: Yes (Other)
  Sender: FDA-Public Use
  Company Number: DE-AMGEN-US400552

PATIENT
  Age: 63 Year
  Sex: Male

DRUGS (3)
  1. ENBREL [Suspect]
     Indication: ANKYLOSING SPONDYLITIS
     Route: 058
     Dates: start: 20090301
  2. IBUPROFEN [Concomitant]
     Dosage: 400MG AS NEEDED
     Route: 048
  3. SULFASALAZINE [Concomitant]
     Route: 065

REACTIONS (1)
  - TESTICULAR DISORDER [None]
